FAERS Safety Report 7068742-X (Version None)
Quarter: 2010Q4

REPORT INFORMATION
  Report Type: 
  Country: None (occurrence: None)
  Receive Date: 20101028
  Receipt Date: 20101021
  Transmission Date: 20110411
  Serious: Yes (Other)
  Sender: FDA-Public Use
  Company Number: US-PFIZER INC-2010126144

PATIENT
  Sex: Female
  Weight: 63.492 kg

DRUGS (2)
  1. LIPITOR [Suspect]
     Indication: HYPERCHOLESTEROLAEMIA
     Dosage: 40 MG, DAILY
     Route: 048
     Dates: start: 20100915
  2. ACETYLSALICYLIC ACID [Concomitant]
     Dosage: 325 MG, DAILY

REACTIONS (6)
  - CONSTIPATION [None]
  - HEART RATE ABNORMAL [None]
  - HYPERTENSION [None]
  - POLLAKIURIA [None]
  - PRODUCT ODOUR ABNORMAL [None]
  - PRODUCT TASTE ABNORMAL [None]
